FAERS Safety Report 12592766 (Version 2)
Quarter: 2016Q3

REPORT INFORMATION
  Report Type: Spontaneous
  Country: US (occurrence: US)
  Receive Date: 20160726
  Receipt Date: 20160819
  Transmission Date: 20161109
  Serious: Yes (Other)
  Sender: FDA-Public Use
  Company Number: US-JNJFOC-20160716020

PATIENT
  Age: 24 Year
  Sex: Female

DRUGS (3)
  1. REMICADE [Suspect]
     Active Substance: INFLIXIMAB
     Indication: CROHN^S DISEASE
     Route: 042
  2. REMICADE [Suspect]
     Active Substance: INFLIXIMAB
     Indication: CROHN^S DISEASE
     Route: 042
     Dates: start: 201606
  3. APRISO [Concomitant]
     Active Substance: MESALAMINE
     Route: 065

REACTIONS (6)
  - Pyoderma [Unknown]
  - Infusion related reaction [Recovered/Resolved]
  - Product use issue [Unknown]
  - Skin exfoliation [Unknown]
  - Arthralgia [Recovered/Resolved]
  - Off label use [Unknown]
